FAERS Safety Report 23345311 (Version 1)
Quarter: 2023Q4

REPORT INFORMATION
  Report Type: Spontaneous
  Country: JP (occurrence: JP)
  Receive Date: 20231228
  Receipt Date: 20231228
  Transmission Date: 20240109
  Serious: Yes (Other)
  Sender: FDA-Public Use
  Company Number: JP-GSKNCCC-Case-01883966_AE-78876

PATIENT

DRUGS (2)
  1. TRELEGY ELLIPTA [Suspect]
     Active Substance: FLUTICASONE FUROATE\UMECLIDINIUM BROMIDE\VILANTEROL TRIFENATATE
     Indication: Asthma
     Dosage: 100 ?G, 1 INHALATION PER DOSE, 1D
     Dates: start: 20231127
  2. ESAXERENONE [Concomitant]
     Active Substance: ESAXERENONE
     Dosage: UNK

REACTIONS (1)
  - Atrial fibrillation [Unknown]
